FAERS Safety Report 7979525-8 (Version None)
Quarter: 2011Q4

REPORT INFORMATION
  Report Type: 
  Country: None (occurrence: None)
  Receive Date: 20111214
  Receipt Date: 20111130
  Transmission Date: 20120403
  Serious: Yes (Other)
  Sender: FDA-Public Use
  Company Number: PHEH2008US06573

PATIENT
  Sex: Female

DRUGS (5)
  1. MEGACE [Concomitant]
  2. GLEEVEC [Suspect]
     Dosage: 20 MG, DAILY
  3. GLEEVEC [Suspect]
     Dosage: 200 MG/DAY
     Dates: end: 20090810
  4. GLEEVEC [Suspect]
     Dosage: 200 MG/DAY
     Dates: end: 20090119
  5. VITAMIN E [Suspect]
     Dosage: UNK UKN, UNK

REACTIONS (19)
  - HEPATIC STEATOSIS [None]
  - PANCYTOPENIA [None]
  - VOMITING [None]
  - DIARRHOEA [None]
  - SKIN REACTION [None]
  - ASTHENIA [None]
  - PLATELET COUNT INCREASED [None]
  - CHRONIC MYELOID LEUKAEMIA [None]
  - SERUM FERRITIN INCREASED [None]
  - OVARIAN CANCER [None]
  - NIGHT SWEATS [None]
  - GASTROENTERITIS VIRAL [None]
  - NAUSEA [None]
  - DRUG INTERACTION [None]
  - MUSCLE SPASMS [None]
  - BASOPHILIA [None]
  - URINARY TRACT INFECTION [None]
  - BLOOD GLUCOSE INCREASED [None]
  - BONE MARROW FAILURE [None]
